FAERS Safety Report 21091874 (Version 1)
Quarter: 2022Q3

REPORT INFORMATION
  Report Type: Report from Study
  Country: US (occurrence: US)
  Receive Date: 20220717
  Receipt Date: 20220717
  Transmission Date: 20221026
  Serious: Yes (Life-Threatening, Other)
  Sender: FDA-Public Use
  Company Number: US-NOVARTISPH-NVSC2022US160326

PATIENT
  Sex: Female

DRUGS (2)
  1. METHYLPREDNISOLONE [Suspect]
     Active Substance: METHYLPREDNISOLONE
     Indication: Systemic lupus erythematosus
     Dosage: UNK
     Route: 065
  2. PREDNISONE [Suspect]
     Active Substance: PREDNISONE
     Indication: Systemic lupus erythematosus
     Dosage: UNK
     Route: 065

REACTIONS (13)
  - Feeling abnormal [Unknown]
  - Illness [Unknown]
  - Peripheral swelling [Unknown]
  - Photosensitivity reaction [Unknown]
  - Fatigue [Unknown]
  - Alopecia [Unknown]
  - Onychomadesis [Unknown]
  - Butterfly rash [Unknown]
  - Arthritis [Unknown]
  - Amnesia [Unknown]
  - Impaired healing [Unknown]
  - Multi-organ disorder [Unknown]
  - Depression [Unknown]
